FAERS Safety Report 4641486-7 (Version None)
Quarter: 2005Q2

REPORT INFORMATION
  Report Type: 
  Country: None (occurrence: None)
  Receive Date: 20050421
  Receipt Date: 20050412
  Transmission Date: 20051028
  Serious: Yes (Hospitalization)
  Sender: FDA-Public Use
  Company Number: JPKYO-S-20040047

PATIENT
  Age: 62 Year
  Sex: Male

DRUGS (3)
  1. NAVELBINE [Suspect]
     Route: 042
     Dates: start: 20040804, end: 20040929
  2. GEMZAR [Suspect]
     Route: 042
     Dates: start: 20040804, end: 20040929
  3. NU-LOTAN [Concomitant]

REACTIONS (3)
  - DYSPNOEA EXERTIONAL [None]
  - PNEUMONIA [None]
  - PYREXIA [None]
